FAERS Safety Report 4404705-8 (Version None)
Quarter: 2004Q3

REPORT INFORMATION
  Report Type: 
  Country: None (occurrence: None)
  Receive Date: 20040722
  Receipt Date: 20040624
  Transmission Date: 20050211
  Serious: Yes (Other)
  Sender: FDA-Public Use
  Company Number: JP-MERCK-0406USA02454

PATIENT
  Age: 69 Year
  Sex: Male

DRUGS (5)
  1. BERIZYME [Concomitant]
     Route: 048
  2. PEPCID RPD [Suspect]
     Route: 048
     Dates: start: 20021001, end: 20040531
  3. FERRUM [Concomitant]
     Route: 048
  4. ALOSENN [Concomitant]
     Route: 048
  5. URSO [Concomitant]
     Route: 048

REACTIONS (1)
  - ANAEMIA [None]
